FAERS Safety Report 6346241-8 (Version None)
Quarter: 2009Q3

REPORT INFORMATION
  Report Type: 
  Country: None (occurrence: None)
  Receive Date: 20090909
  Receipt Date: 20090902
  Transmission Date: 20100115
  Serious: Yes (Other)
  Sender: FDA-Public Use
  Company Number: PHHY2009DK35469

PATIENT
  Sex: Male

DRUGS (4)
  1. RASILEZ [Suspect]
     Dosage: 300 MG, UNK
     Dates: start: 20090617, end: 20090817
  2. CORODIL COMP [Concomitant]
     Indication: HYPERTENSION
     Dosage: UNK
     Dates: start: 20090416
  3. PLAVIX [Concomitant]
     Indication: INFARCTION
     Dosage: 75 MG, UNK
     Dates: start: 20050616
  4. METFORMIN HCL [Concomitant]
     Indication: DIABETES MELLITUS
     Dosage: 1 DF, BID

REACTIONS (3)
  - ALBUMIN URINE PRESENT [None]
  - CREATININE URINE DECREASED [None]
  - URINE ALBUMIN/CREATININE RATIO INCREASED [None]
